FAERS Safety Report 10087126 (Version 2)
Quarter: 2014Q2

REPORT INFORMATION
  Report Type: Spontaneous
  Country: US (occurrence: US)
  Receive Date: 20140418
  Receipt Date: 20140619
  Transmission Date: 20141212
  Serious: Yes (Other)
  Sender: FDA-Public Use
  Company Number: US-CUBIST PHARMACEUTICAL, INC.-2014CBST000598

PATIENT
  Sex: 0

DRUGS (4)
  1. ENTEREG [Suspect]
     Indication: COLON OPERATION
     Dosage: 12 MG, BID
     Route: 048
  2. ENTEREG [Suspect]
     Dosage: 12 MG, BID
     Route: 048
  3. ESTROGEN [Concomitant]
     Indication: PRODUCT USED FOR UNKNOWN INDICATION
     Dosage: UNK, UNK, UNK
     Route: 065
  4. CLARITIN D [Concomitant]
     Indication: PRODUCT USED FOR UNKNOWN INDICATION
     Dosage: UNK, UNK, UNK
     Route: 065

REACTIONS (1)
  - Urticaria [Recovered/Resolved]
